FAERS Safety Report 15356970 (Version 1)
Quarter: 2018Q3

REPORT INFORMATION
  Report Type: Spontaneous
  Country: CH (occurrence: CH)
  Receive Date: 20180906
  Receipt Date: 20180906
  Transmission Date: 20181010
  Serious: Yes (Other)
  Sender: FDA-Public Use
  Company Number: CH-GLAXOSMITHKLINE-CH2018GSK148432

PATIENT
  Age: 30 Year
  Sex: Male

DRUGS (1)
  1. LAMICTAL [Suspect]
     Active Substance: LAMOTRIGINE
     Indication: EPILEPSY
     Dosage: 200 MG, BID
     Route: 048
     Dates: start: 2002

REACTIONS (8)
  - Disorientation [Unknown]
  - Anticonvulsant drug level decreased [Unknown]
  - Somnolence [Unknown]
  - Epilepsy [Recovered/Resolved]
  - Fall [Recovered/Resolved]
  - Product storage error [Not Recovered/Not Resolved]
  - Muscle spasms [Recovered/Resolved]
  - Loss of consciousness [Unknown]

NARRATIVE: CASE EVENT DATE: 2018
